FAERS Safety Report 7461674-4 (Version None)
Quarter: 2011Q2

REPORT INFORMATION
  Report Type: 
  Country: None (occurrence: None)
  Receive Date: 20110506
  Receipt Date: 20110421
  Transmission Date: 20111010
  Serious: No
  Sender: FDA-Public Use
  Company Number: US-B.I. PHARMACEUTICALS,INC./RIDGEFIELD-2011-BP-03832BP

PATIENT
  Sex: Female

DRUGS (9)
  1. CALCIUM [Concomitant]
  2. PRADAXA [Suspect]
     Indication: PROPHYLAXIS
  3. UNSPECIFIED CHOLESTEROL MEDICATION [Concomitant]
     Indication: BLOOD CHOLESTEROL INCREASED
  4. VITAMINS [Concomitant]
     Indication: PROPHYLAXIS
  5. LEVOXYL [Concomitant]
  6. SIMVASTATIN [Concomitant]
  7. VITAMIN D [Concomitant]
  8. UNSPECIFIED THYROID MEDICAITON [Concomitant]
     Indication: HYPOTHYROIDISM
  9. PRADAXA [Suspect]
     Indication: ATRIAL FIBRILLATION
     Dosage: 150 MG
     Route: 048
     Dates: start: 20110131

REACTIONS (2)
  - ATRIAL FIBRILLATION [None]
  - RASH [None]
